FAERS Safety Report 23850033 (Version 1)
Quarter: 2024Q2

REPORT INFORMATION
  Report Type: Spontaneous
  Country: US (occurrence: None)
  Receive Date: 20240512
  Receipt Date: 20240512
  Transmission Date: 20240716
  Serious: Yes (Hospitalization, Disabling, Other)
  Sender: FDA-Public Use
  Company Number: None

PATIENT
  Age: 38 Year
  Sex: Male
  Weight: 90 kg

DRUGS (1)
  1. CIPROFLOXACIN [Suspect]
     Active Substance: CIPROFLOXACIN
     Indication: Infection
     Dosage: FREQUENCY : TWICE A DAY;?
     Route: 048
     Dates: start: 20240424, end: 20240428

REACTIONS (9)
  - Tendon pain [None]
  - Neuralgia [None]
  - Muscle spasms [None]
  - Pain in extremity [None]
  - Fatigue [None]
  - Gait inability [None]
  - Arthralgia [None]
  - Muscle atrophy [None]
  - Liver injury [None]

NARRATIVE: CASE EVENT DATE: 20240427
